FAERS Safety Report 6937793-5 (Version None)
Quarter: 2010Q3

REPORT INFORMATION
  Report Type: 
  Country: None (occurrence: None)
  Receive Date: 20100820
  Receipt Date: 20100820
  Transmission Date: 20110219
  Serious: Yes (Life-Threatening, Hospitalization, Disabling, Other)
  Sender: FDA-Public Use
  Company Number: None

PATIENT
  Age: 59 Year
  Sex: Female
  Weight: 54.4316 kg

DRUGS (1)
  1. LYRICA [Suspect]
     Indication: FIBROMYALGIA
     Dosage: 1 CAPSULE 2 X'S DAY ORAL
     Route: 048
     Dates: start: 20100623

REACTIONS (5)
  - LOSS OF CONSCIOUSNESS [None]
  - MOUTH INJURY [None]
  - ORAL DISORDER [None]
  - TOOTH DISORDER [None]
  - TRAUMATIC OCCLUSION [None]
